FAERS Safety Report 7821225-9 (Version None)
Quarter: 2011Q4

REPORT INFORMATION
  Report Type: 
  Country: None (occurrence: None)
  Receive Date: 20111018
  Receipt Date: 20111007
  Transmission Date: 20120403
  Serious: Yes (Hospitalization)
  Sender: FDA-Public Use
  Company Number: US-PERRIGO-11US008512

PATIENT
  Age: 30 Year
  Sex: Female

DRUGS (3)
  1. NAPROXEN SODIUM [Suspect]
     Indication: ARTHRALGIA
     Dosage: UNK
     Route: 048
     Dates: start: 19910101, end: 19910101
  2. PREDNISONE [Concomitant]
     Indication: SYSTEMIC LUPUS ERYTHEMATOSUS
     Dosage: UP TO 12 MG PER DAY
     Route: 065
  3. NAPROXEN SODIUM [Suspect]

REACTIONS (11)
  - JAUNDICE [None]
  - OCULAR ICTERUS [None]
  - ALANINE AMINOTRANSFERASE INCREASED [None]
  - CHROMATURIA [None]
  - BLOOD BILIRUBIN INCREASED [None]
  - CHOLESTASIS [None]
  - ASPARTATE AMINOTRANSFERASE INCREASED [None]
  - BLOOD ALKALINE PHOSPHATASE INCREASED [None]
  - PRURITUS [None]
  - HEPATOTOXICITY [None]
  - FAECES DISCOLOURED [None]
